FAERS Safety Report 9061385 (Version 1)
Quarter: 2013Q1

REPORT INFORMATION
  Report Type: Spontaneous
  Country: US (occurrence: None)
  Receive Date: 20130208
  Receipt Date: 20130208
  Transmission Date: 20140127
  Serious: Yes (Hospitalization)
  Sender: FDA-Public Use
  Company Number: None

PATIENT
  Sex: Male

DRUGS (1)
  1. ZELBORAF [Suspect]
     Indication: THYROID CANCER
     Route: 048
     Dates: start: 201211, end: 201212

REACTIONS (3)
  - Delirium [None]
  - Asthenia [None]
  - Hypersomnia [None]
